FAERS Safety Report 5332639-3 (Version None)
Quarter: 2007Q2

REPORT INFORMATION
  Report Type: 
  Country: None (occurrence: None)
  Receive Date: 20070523
  Receipt Date: 20070514
  Transmission Date: 20071010
  Serious: Yes (Other)
  Sender: FDA-Public Use
  Company Number: US-PFIZER INC-2007040075

PATIENT
  Age: 72 Year

DRUGS (1)
  1. GLIPIZIDE [Suspect]

REACTIONS (1)
  - CEREBROVASCULAR ACCIDENT [None]
